FAERS Safety Report 22262872 (Version 1)
Quarter: 2023Q2

REPORT INFORMATION
  Report Type: Spontaneous
  Country: BG (occurrence: BG)
  Receive Date: 20230428
  Receipt Date: 20230428
  Transmission Date: 20230721
  Serious: Yes (Other)
  Sender: FDA-Public Use
  Company Number: BG-ORGANON-O2304BGR002427

PATIENT
  Age: 56 Year
  Sex: Male

DRUGS (4)
  1. LOSARTAN POTASSIUM [Suspect]
     Active Substance: LOSARTAN POTASSIUM
     Indication: Hepatic steatosis
     Dosage: 50 MILLIGRAM, QD
     Route: 048
  2. LOSARTAN POTASSIUM [Suspect]
     Active Substance: LOSARTAN POTASSIUM
     Indication: Hypertension
  3. FELODIPINE [Suspect]
     Active Substance: FELODIPINE
     Indication: Hepatic steatosis
     Dosage: 2.5 MILLIGRAM, QD
  4. FELODIPINE [Suspect]
     Active Substance: FELODIPINE
     Indication: Hypertension

REACTIONS (2)
  - Basal cell carcinoma [Unknown]
  - Product use in unapproved indication [Unknown]
